FAERS Safety Report 4632883-4 (Version None)
Quarter: 2005Q2

REPORT INFORMATION
  Report Type: 
  Country: None (occurrence: None)
  Receive Date: 20050412
  Receipt Date: 20030530
  Transmission Date: 20051028
  Serious: Yes (Other)
  Sender: FDA-Public Use
  Company Number: PHFR2003GB05095

PATIENT

DRUGS (4)
  1. ZOMETA [Suspect]
  2. THALIDOMIDE [Suspect]
  3. RISEDRONATE SODIUM [Suspect]
  4. PARACETAMOL [Suspect]

REACTIONS (2)
  - DRUG INTERACTION [None]
  - HEPATIC FAILURE [None]
